FAERS Safety Report 4486700-6 (Version None)
Quarter: 2004Q4

REPORT INFORMATION
  Report Type: 
  Country: None (occurrence: None)
  Receive Date: 20041021
  Receipt Date: 20041008
  Transmission Date: 20050328
  Serious: Yes (Other)
  Sender: FDA-Public Use
  Company Number: RENA-11186

PATIENT
  Age: 72 Year
  Sex: Male
  Weight: 58 kg

DRUGS (12)
  1. RENAGEL [Suspect]
     Indication: HYPERPHOSPHATAEMIA
     Dosage: 0.25 G TID PO
     Route: 048
     Dates: start: 20040921, end: 20040926
  2. FAMOTIDINE [Concomitant]
  3. CARVEDILOL [Concomitant]
  4. DILTIAZEM HYDROCHLORIDE [Concomitant]
  5. TICLOPIDINE HCL [Concomitant]
  6. ISOSORBIDE MONONITRATE [Concomitant]
  7. BEZAFIBRATE [Concomitant]
  8. ACETYLSALICYLIC ACID [Concomitant]
  9. CALCITRIOL [Concomitant]
  10. LOSARTAN POTASSIUM [Concomitant]
  11. AMBROXOL HYDROCHLORIDE [Concomitant]
  12. EPOETIN ALFA [Concomitant]

REACTIONS (2)
  - FACE OEDEMA [None]
  - GENERALISED ERYTHEMA [None]
